FAERS Safety Report 14652390 (Version 1)
Quarter: 2018Q1

REPORT INFORMATION
  Report Type: Spontaneous
  Country: US (occurrence: US)
  Receive Date: 20180318
  Receipt Date: 20180318
  Transmission Date: 20180509
  Serious: No
  Sender: FDA-Public Use
  Company Number: US-BAUSCH-BL-2017-013548

PATIENT
  Age: 46 Year
  Sex: Female
  Weight: 54.48 kg

DRUGS (9)
  1. DESMOPRESSIN ACETATE NASAL SOLUTION 0.01% [Suspect]
     Active Substance: DESMOPRESSIN ACETATE
     Dosage: ONE SPRAY IN EACH NOSTRIL AT BEDTIME
     Route: 045
     Dates: start: 20170501
  2. CO-Q 10 [Concomitant]
     Active Substance: UBIDECARENONE
     Indication: BLOOD CHOLESTEROL ABNORMAL
     Route: 048
  3. CRANBERRY. [Concomitant]
     Active Substance: CRANBERRY
     Indication: PROPHYLAXIS
     Route: 048
  4. BENADRYL [Concomitant]
     Active Substance: DIPHENHYDRAMINE HYDROCHLORIDE
     Indication: HYPERSENSITIVITY
     Dosage: HALF TABLET AT NIGHT
     Route: 048
  5. AMICAR [Concomitant]
     Active Substance: AMINOCAPROIC ACID
     Indication: VON WILLEBRAND^S DISEASE
     Dosage: EVERY NIGHT
     Route: 048
     Dates: start: 2017
  6. PANTOPRAZOLE [Concomitant]
     Active Substance: PANTOPRAZOLE
     Indication: GASTROOESOPHAGEAL REFLUX DISEASE
     Dosage: EVERY MORNING
     Route: 048
  7. MUCINEX-D [Concomitant]
     Indication: HYPERSENSITIVITY
     Dosage: HALF TABLET
     Route: 048
  8. DESMOPRESSIN ACETATE NASAL SOLUTION 0.01% [Suspect]
     Active Substance: DESMOPRESSIN ACETATE
     Indication: VON WILLEBRAND^S DISEASE
     Dosage: ONE SPRAY IN EACH NOSTRIL AT BEDTIME
     Route: 045
     Dates: start: 2017
  9. LORATADINE. [Concomitant]
     Active Substance: LORATADINE
     Indication: HYPERSENSITIVITY
     Route: 048

REACTIONS (6)
  - Renal pain [Recovered/Resolved]
  - Product use in unapproved indication [Unknown]
  - Medication error [Unknown]
  - Headache [Recovering/Resolving]
  - Product quality issue [Unknown]
  - Peripheral swelling [Recovering/Resolving]

NARRATIVE: CASE EVENT DATE: 2017
